FAERS Safety Report 8023107-9 (Version None)
Quarter: 2012Q1

REPORT INFORMATION
  Report Type: 
  Country: None (occurrence: None)
  Receive Date: 20120104
  Receipt Date: 20111228
  Transmission Date: 20120608
  Serious: Yes (Death, Hospitalization, Other)
  Sender: FDA-Public Use
  Company Number: US-CELGENEUS-163-21880-11100113

PATIENT
  Sex: Male
  Weight: 83.99 kg

DRUGS (37)
  1. PROMETHAZINE HCL [Concomitant]
     Indication: NAUSEA
     Dosage: 25 MILLIGRAM
     Route: 048
  2. SIMVASTATIN [Concomitant]
     Dosage: 10 MILLIGRAM
     Route: 048
  3. TRIAMTERENE AND HYDROCHLOROTHIAZIDE [Concomitant]
     Dosage: 37.5-25 MG
     Route: 048
  4. PROSCAR [Concomitant]
     Dosage: 5 MILLIGRAM
     Route: 065
  5. ASPIRIN [Concomitant]
     Dosage: 81 MILLIGRAM
     Route: 048
  6. DEXAMETHASONE [Concomitant]
     Dosage: 4 TABLET
     Route: 048
  7. FLOMAX [Concomitant]
     Dosage: .4 MILLIGRAM
     Route: 048
  8. ALLOPURINOL [Concomitant]
     Dosage: 100 MILLIGRAM
     Route: 048
  9. ESOMEPRAZOLE SODIUM [Concomitant]
     Dosage: 40 MILLIGRAM
     Route: 048
  10. REVLIMID [Suspect]
     Dosage: 25 MILLIGRAM
     Route: 048
     Dates: start: 20110901, end: 20110101
  11. CALCIUM CARBONATE [Concomitant]
     Dosage: 600 MILLIGRAM
     Route: 048
  12. CO Q-10 [Concomitant]
     Dosage: 300 MILLIGRAM
     Route: 048
  13. ALL OTHER THERAPEUTIC PRODUCTS [Concomitant]
     Dosage: 10 MILLILITER
     Route: 065
  14. KEFLEX [Concomitant]
     Dosage: 500 MILLIGRAM
     Route: 048
  15. LOVAZA [Concomitant]
     Dosage: 1000 MILLIGRAM
     Route: 048
  16. VITAMIN C [Concomitant]
     Route: 048
  17. AMITRIPTYLINE HCL [Concomitant]
     Dosage: 25 MILLIGRAM
     Route: 048
  18. PREVACID [Concomitant]
     Route: 065
  19. VITAMIN D [Concomitant]
     Route: 065
  20. FISH OIL [Concomitant]
     Route: 065
  21. VITAMIN D [Concomitant]
     Route: 065
  22. PHENERGAN [Concomitant]
     Dosage: 12.5 MILLIGRAM
     Route: 065
  23. CALCITONIN SALMON [Concomitant]
     Dosage: 200/DOSE
     Route: 045
  24. MAGNESIUM CHLORIDE [Concomitant]
     Route: 048
  25. CHOLECALCIFEROL [Concomitant]
     Dosage: 5000 IU (INTERNATIONAL UNIT)
     Route: 048
  26. LEVOFLOXACIN [Concomitant]
     Dosage: 250 MILLIGRAM
     Route: 048
  27. FINASTERIDE [Concomitant]
     Dosage: 5 MILLIGRAM
     Route: 048
  28. MEGESTROL ACETATE [Concomitant]
     Dosage: 40 MILLIGRAM
     Route: 048
  29. VELCADE [Concomitant]
     Route: 065
  30. BLOOD TRANSFUSION [Concomitant]
     Route: 041
  31. BROAD SPECTRUM ANTIBIOTICS [Concomitant]
     Route: 065
  32. NEURONTIN [Concomitant]
     Dosage: 300 MILLIGRAM
     Route: 065
  33. ZOCOR [Concomitant]
     Dosage: 10 MILLIGRAM
     Route: 065
  34. REVLIMID [Suspect]
     Indication: MULTIPLE MYELOMA
     Dosage: 25 MILLIGRAM
     Route: 048
     Dates: start: 20110909, end: 20110918
  35. REGLAN [Concomitant]
     Dosage: 10 MILLIGRAM
     Route: 048
  36. SUCRALFATE [Concomitant]
     Dosage: 1 GRAM
     Route: 048
  37. NEXIUM [Concomitant]
     Dosage: 40 MILLIGRAM
     Route: 065

REACTIONS (10)
  - RASH [None]
  - OESOPHAGITIS [None]
  - DRY SKIN [None]
  - HYPOTENSION [None]
  - ACUTE RESPIRATORY FAILURE [None]
  - MULTIPLE MYELOMA [None]
  - PANCYTOPENIA [None]
  - FEBRILE NEUTROPENIA [None]
  - DECREASED APPETITE [None]
  - RENAL FAILURE CHRONIC [None]
